FAERS Safety Report 6881951-5 (Version None)
Quarter: 2010Q3

REPORT INFORMATION
  Report Type: 
  Country: None (occurrence: None)
  Receive Date: 20100727
  Receipt Date: 20100712
  Transmission Date: 20110219
  Serious: Yes (Other)
  Sender: FDA-Public Use
  Company Number: GB-MYLANLABS-2010S1012350

PATIENT
  Age: 77 Year
  Sex: Male

DRUGS (5)
  1. GABAPENTIN [Suspect]
     Indication: NEURALGIA
     Dates: start: 20070101, end: 20100501
  2. AMLODIPINE [Concomitant]
     Indication: HYPERTENSION
  3. CALCICHEW [Concomitant]
     Indication: OSTEOPOROSIS
     Route: 048
  4. DICLOFENAC [Concomitant]
     Indication: MUSCULOSKELETAL PAIN
     Route: 048
  5. RANITIDINE [Concomitant]
     Indication: PROPHYLAXIS

REACTIONS (2)
  - HALLUCINATION, VISUAL [None]
  - WITHDRAWAL SYNDROME [None]
